FAERS Safety Report 14899271 (Version 1)
Quarter: 2018Q2

REPORT INFORMATION
  Report Type: Report from Study
  Country: US (occurrence: US)
  Receive Date: 20180516
  Receipt Date: 20180516
  Transmission Date: 20180711
  Serious: Yes (Death, Other)
  Sender: FDA-Public Use
  Company Number: US-CIPLA (EU) LIMITED-2018US17851

PATIENT

DRUGS (6)
  1. CETUXIMAB. [Suspect]
     Active Substance: CETUXIMAB
     Indication: HEAD AND NECK CANCER METASTATIC
     Dosage: 400 MG/M2, LOADING-DOSE
     Route: 065
  2. CETUXIMAB. [Suspect]
     Active Substance: CETUXIMAB
     Dosage: 250 MG/M2, DAYS 1 AND 8
  3. CARBOPLATIN. [Suspect]
     Active Substance: CARBOPLATIN
     Indication: HEAD AND NECK CANCER METASTATIC
     Dosage: AUC=6 ON DAY 1
     Route: 065
  4. PACLITAXEL. [Suspect]
     Active Substance: PACLITAXEL
     Indication: HEAD AND NECK CANCER METASTATIC
     Dosage: 100MG/M2 ON DAYS 1, 8, 15
     Route: 065
  5. 5-FU                               /00098801/ [Suspect]
     Active Substance: FLUOROURACIL
     Indication: HEAD AND NECK CANCER METASTATIC
     Dosage: 600 MG/M2/DAY, CONTINUOUS IV DAYS 0-5
     Route: 065
  6. HYDROXYUREA. [Suspect]
     Active Substance: HYDROXYUREA
     Indication: HEAD AND NECK CANCER METASTATIC
     Dosage: 500 MG, BID DAYS 0-5
     Route: 048

REACTIONS (1)
  - Acute respiratory failure [Fatal]
